FAERS Safety Report 7339052-8 (Version None)
Quarter: 2011Q1

REPORT INFORMATION
  Report Type: 
  Country: None (occurrence: None)
  Receive Date: 20110308
  Receipt Date: 20110223
  Transmission Date: 20110831
  Serious: Yes (Death)
  Sender: FDA-Public Use
  Company Number: JP-ELI_LILLY_AND_COMPANY-JP201102006602

PATIENT

DRUGS (1)
  1. ADCIRCA [Suspect]
     Route: 048

REACTIONS (1)
  - DEATH [None]
